FAERS Safety Report 18377463 (Version 2)
Quarter: 2020Q4

REPORT INFORMATION
  Report Type: Spontaneous
  Country: US (occurrence: US)
  Receive Date: 20201013
  Receipt Date: 20201022
  Transmission Date: 20210114
  Serious: No
  Sender: FDA-Public Use
  Company Number: US-HORIZON-TEP-2479-2020

PATIENT
  Age: 45 Year
  Sex: Female
  Weight: 62 kg

DRUGS (4)
  1. MG [Concomitant]
     Active Substance: MAGNESIUM
  2. TEPEZZA [Suspect]
     Active Substance: TEPROTUMUMAB-TRBW
     Indication: TOXIC GOITRE
     Dosage: EVERY 3 WEEKS
  3. VITAMIN B12 [Concomitant]
     Active Substance: CYANOCOBALAMIN
  4. ZINC. [Concomitant]
     Active Substance: ZINC

REACTIONS (3)
  - Abdominal pain upper [Recovered/Resolved]
  - Muscle tightness [Recovered/Resolved]
  - Diarrhoea [Recovered/Resolved]
